FAERS Safety Report 5522017-6 (Version None)
Quarter: 2007Q4

REPORT INFORMATION
  Report Type: 
  Country: None (occurrence: None)
  Receive Date: 20071115
  Receipt Date: 20071031
  Transmission Date: 20080405
  Serious: Yes (Hospitalization)
  Sender: FDA-Public Use
  Company Number: ALK_00442_2007

PATIENT
  Sex: Male
  Weight: 89.3586 kg

DRUGS (4)
  1. VIVITROL [Suspect]
     Indication: ALCOHOLISM
     Dosage: 380 MG 1X/MONTH; INTRAMUSCULAR
     Route: 030
     Dates: start: 20070201, end: 20071105
  2. METOPROLOL [Concomitant]
  3. ACAMPROSATE [Concomitant]
  4. PAXIL [Concomitant]

REACTIONS (1)
  - ALCOHOL POISONING [None]
